FAERS Safety Report 25326125 (Version 1)
Quarter: 2025Q2

REPORT INFORMATION
  Report Type: Spontaneous
  Country: US (occurrence: US)
  Receive Date: 20250516
  Receipt Date: 20250516
  Transmission Date: 20250717
  Serious: No
  Sender: GALDERMA
  Company Number: US-GALDERMA-US2025005391

PATIENT

DRUGS (3)
  1. NEMLUVIO [Suspect]
     Active Substance: NEMOLIZUMAB-ILTO
     Indication: Neurodermatitis
     Route: 058
     Dates: start: 20250318, end: 20250318
  2. NEMLUVIO [Suspect]
     Active Substance: NEMOLIZUMAB-ILTO
     Route: 058
     Dates: start: 20250324, end: 20250324
  3. NEMLUVIO [Suspect]
     Active Substance: NEMOLIZUMAB-ILTO
     Route: 058
     Dates: start: 20250407, end: 20250407

REACTIONS (2)
  - Off label use [Recovered/Resolved]
  - Intentional overdose [Recovered/Resolved]
